FAERS Safety Report 5119008-6 (Version None)
Quarter: 2006Q3

REPORT INFORMATION
  Report Type: 
  Country: None (occurrence: None)
  Receive Date: 20060927
  Receipt Date: 20060912
  Transmission Date: 20061208
  Serious: Yes (Other)
  Sender: FDA-Public Use
  Company Number: 2006RL000336

PATIENT
  Age: 81 Year
  Sex: Female
  Weight: 65.7716 kg

DRUGS (4)
  1. DYNACIRC [Suspect]
     Indication: HYPERTENSION
     Dosage: 10 MG; QD; PO
     Route: 048
     Dates: start: 20040101
  2. ALTACE [Concomitant]
  3. OMEGA 3 [Concomitant]
  4. ANTIOXIDENTS (NOS) [Concomitant]

REACTIONS (6)
  - BLISTER [None]
  - PAIN [None]
  - PRURITUS [None]
  - RASH ERYTHEMATOUS [None]
  - RASH GENERALISED [None]
  - SKIN EXFOLIATION [None]
